FAERS Safety Report 14563051 (Version 1)
Quarter: 2018Q1

REPORT INFORMATION
  Report Type: Spontaneous
  Country: US (occurrence: US)
  Receive Date: 20180221
  Receipt Date: 20180221
  Transmission Date: 20180509
  Serious: Yes (Hospitalization, Disabling)
  Sender: FDA-Public Use
  Company Number: None

PATIENT
  Age: 37 Year

DRUGS (1)
  1. REGLAN [Suspect]
     Active Substance: METOCLOPRAMIDE HYDROCHLORIDE

REACTIONS (10)
  - Insomnia [None]
  - Dyskinesia [None]
  - Feeling abnormal [None]
  - Muscle twitching [None]
  - Restlessness [None]
  - Depression [None]
  - Restless legs syndrome [None]
  - Scratch [None]
  - Anxiety [None]
  - Diarrhoea [None]

NARRATIVE: CASE EVENT DATE: 20160422
